FAERS Safety Report 17808797 (Version 3)
Quarter: 2020Q2

REPORT INFORMATION
  Report Type: Report from Study
  Country: IL (occurrence: IL)
  Receive Date: 20200520
  Receipt Date: 20200606
  Transmission Date: 20200714
  Serious: No
  Sender: FDA-Public Use
  Company Number: NVSC2020IL118766

PATIENT
  Sex: Female
  Weight: 5.5 kg

DRUGS (4)
  1. ZOLGENSMA [Suspect]
     Active Substance: ONASEMNOGENE ABEPARVOVEC-XIOI
     Dosage: 1 VIAL 5.5 ML BN
     Route: 042
  2. ZOLGENSMA [Suspect]
     Active Substance: ONASEMNOGENE ABEPARVOVEC-XIOI
     Indication: SPINAL MUSCULAR ATROPHY
     Dosage: 30.5 ML
     Route: 042
     Dates: start: 20200423
  3. ZOLGENSMA [Suspect]
     Active Substance: ONASEMNOGENE ABEPARVOVEC-XIOI
     Dosage: 3 VIALS 8.3 ML BN
     Route: 042
  4. PREDNISONE. [Concomitant]
     Active Substance: PREDNISONE
     Indication: PRODUCT USED FOR UNKNOWN INDICATION
     Dosage: 5.5 MG
     Route: 065
     Dates: start: 20200422

REACTIONS (10)
  - Troponin T increased [Recovered/Resolved]
  - Platelet count decreased [Not Recovered/Not Resolved]
  - Aspartate aminotransferase increased [Not Recovered/Not Resolved]
  - Reticulocytosis [Not Recovered/Not Resolved]
  - Troponin I increased [Recovered/Resolved]
  - Pyrexia [Recovered/Resolved]
  - Hepatic enzyme increased [Unknown]
  - Dyspnoea [Unknown]
  - Blood lactate dehydrogenase increased [Not Recovered/Not Resolved]
  - Monocytosis [Not Recovered/Not Resolved]

NARRATIVE: CASE EVENT DATE: 20200426
